FAERS Safety Report 10622422 (Version 1)
Quarter: 2014Q4

REPORT INFORMATION
  Report Type: Spontaneous
  Country: DE (occurrence: DE)
  Receive Date: 20141203
  Receipt Date: 20141203
  Transmission Date: 20150529
  Serious: Yes (Hospitalization, Other)
  Sender: FDA-Public Use
  Company Number: DE-ELI_LILLY_AND_COMPANY-DE201411009172

PATIENT
  Age: 73 Year
  Sex: Female

DRUGS (12)
  1. KEPPRA [Concomitant]
     Active Substance: LEVETIRACETAM
     Indication: PRODUCT USED FOR UNKNOWN INDICATION
     Dosage: 1000 MG, QD
     Route: 048
     Dates: start: 201305, end: 20130801
  2. AMLODIPIN                          /00972401/ [Concomitant]
     Active Substance: AMLODIPINE BESYLATE
     Indication: PRODUCT USED FOR UNKNOWN INDICATION
     Dosage: 5 MG, QD
     Route: 048
  3. ZYPREXA [Suspect]
     Active Substance: OLANZAPINE
     Dosage: 5 MG, QD
     Route: 048
     Dates: start: 20130619, end: 20130619
  4. RAMIPRIL. [Concomitant]
     Active Substance: RAMIPRIL
     Indication: PRODUCT USED FOR UNKNOWN INDICATION
     Dosage: 10 MG, QD
     Route: 048
     Dates: start: 20130618
  5. METFORMIN [Concomitant]
     Active Substance: METFORMIN HYDROCHLORIDE
     Indication: PRODUCT USED FOR UNKNOWN INDICATION
     Dosage: 1000 MG, QD
     Route: 048
     Dates: start: 20130618, end: 20130620
  6. ZYPREXA [Suspect]
     Active Substance: OLANZAPINE
     Indication: SCHIZOPHRENIA, CATATONIC TYPE
     Dosage: 10 MG, QD
     Route: 048
     Dates: start: 2000, end: 20130425
  7. ZYPREXA [Suspect]
     Active Substance: OLANZAPINE
     Dosage: 15 MG, QD
     Route: 048
     Dates: start: 20130618, end: 20130618
  8. TAVOR [Concomitant]
     Active Substance: LORAZEPAM
     Indication: PRODUCT USED FOR UNKNOWN INDICATION
     Dosage: 1.5 MG, QD
     Route: 048
     Dates: start: 20130618, end: 20130701
  9. TAVOR [Concomitant]
     Active Substance: LORAZEPAM
     Dosage: 1 MG, QD
     Route: 048
     Dates: start: 20130702
  10. ZYPREXA [Suspect]
     Active Substance: OLANZAPINE
     Dosage: 20 MG, UNKNOWN
     Route: 065
     Dates: start: 201305
  11. LETROZOL [Concomitant]
     Active Substance: LETROZOLE
     Indication: PRODUCT USED FOR UNKNOWN INDICATION
     Dosage: 2.5 MG, QD
     Route: 048
     Dates: start: 20130618
  12. KEPPRA [Concomitant]
     Active Substance: LEVETIRACETAM
     Dosage: UNK UNK, UNKNOWN
     Route: 048
     Dates: start: 20130802

REACTIONS (10)
  - Parkinson^s disease [Unknown]
  - Normochromic normocytic anaemia [Unknown]
  - Urinary tract infection bacterial [Unknown]
  - Neuroleptic malignant syndrome [Recovered/Resolved]
  - Epilepsy [Unknown]
  - Polydipsia psychogenic [Unknown]
  - Cerebral infarction [Unknown]
  - Pleural effusion [Unknown]
  - Hyponatraemia [Unknown]
  - Microangiopathy [Unknown]

NARRATIVE: CASE EVENT DATE: 20130619
